FAERS Safety Report 4331296-2 (Version None)
Quarter: 2004Q1

REPORT INFORMATION
  Report Type: 
  Country: None (occurrence: None)
  Receive Date: 20040331
  Receipt Date: 20040318
  Transmission Date: 20041129
  Serious: Yes (Hospitalization, Other)
  Sender: FDA-Public Use
  Company Number: 2004019131

PATIENT
  Age: 30 Year
  Sex: Female

DRUGS (4)
  1. AMLODIPINE [Suspect]
     Indication: ILL-DEFINED DISORDER
     Dosage: 5 MG (DAILY)
  2. PREDNISOLONE [Suspect]
     Indication: ILL-DEFINED DISORDER
     Dosage: 5 MG (DAILY), ORAL
     Route: 048
     Dates: start: 20000101
  3. AZATHIOPRINE [Suspect]
     Indication: ILL-DEFINED DISORDER
     Dosage: 150 MG (DAILY)
  4. CYCLOSPORINE [Suspect]
     Indication: HEART TRANSPLANT
     Dosage: 225 MG (DAILY), ORAL
     Route: 048
     Dates: start: 20000101

REACTIONS (4)
  - ABORTION SPONTANEOUS [None]
  - COMPLICATIONS OF MATERNAL EXPOSURE TO THERAPEUTIC DRUGS [None]
  - MATERNAL DRUGS AFFECTING FOETUS [None]
  - PREMATURE RUPTURE OF MEMBRANES [None]
